FAERS Safety Report 11642218 (Version 3)
Quarter: 2019Q2

REPORT INFORMATION
  Report Type: Spontaneous
  Country: US (occurrence: US)
  Receive Date: 20151019
  Receipt Date: 20190409
  Transmission Date: 20190711
  Serious: No
  Sender: FDA-Public Use
  Company Number: US-PFIZER INC-2015347321

PATIENT
  Age: 50 Year
  Sex: Male
  Weight: 91 kg

DRUGS (2)
  1. CAVERJECT [Suspect]
     Active Substance: ALPROSTADIL
     Dosage: 40 MG, UNK (QUANTITY FOR 90 DAYS: 6 SINGLE DOSE)
  2. VIAGRA [Concomitant]
     Active Substance: SILDENAFIL CITRATE
     Dosage: UNK

REACTIONS (2)
  - Product preparation error [Unknown]
  - Drug ineffective [Unknown]
